FAERS Safety Report 12795273 (Version 1)
Quarter: 2016Q3

REPORT INFORMATION
  Report Type: Spontaneous
  Country: US (occurrence: US)
  Receive Date: 20160929
  Receipt Date: 20160929
  Transmission Date: 20161109
  Serious: Yes (Hospitalization)
  Sender: FDA-Public Use
  Company Number: US-BAYER-2016-187940

PATIENT
  Age: 69 Year
  Sex: Male

DRUGS (4)
  1. ACETYLSALICYLIC ACID({=100 MG) [Suspect]
     Active Substance: ASPIRIN
  2. PHENYLEPHRINE [Concomitant]
     Active Substance: PHENYLEPHRINE\PHENYLEPHRINE HYDROCHLORIDE
     Indication: BLOOD PRESSURE MANAGEMENT
  3. HEPARIN [Interacting]
     Active Substance: HEPARIN SODIUM
     Dosage: 12000 U, ONCE
     Route: 042
  4. PLAVIX [Interacting]
     Active Substance: CLOPIDOGREL BISULFATE

REACTIONS (3)
  - Labelled drug-drug interaction medication error [None]
  - Puncture site haemorrhage [None]
  - Drug administration error [None]
